FAERS Safety Report 9370477 (Version 1)
Quarter: 2013Q2

REPORT INFORMATION
  Report Type: Spontaneous
  Country: CO (occurrence: CO)
  Receive Date: 20130626
  Receipt Date: 20130626
  Transmission Date: 20140414
  Serious: Yes (Other)
  Sender: FDA-Public Use
  Company Number: CO-AMGEN-COLSP2013044502

PATIENT
  Age: 20 Year
  Sex: Female

DRUGS (4)
  1. ENBREL [Suspect]
     Indication: RHEUMATOID ARTHRITIS
     Dosage: 50 MG, WEEKLY
     Route: 058
     Dates: start: 2012, end: 20130614
  2. RANITIDINE [Suspect]
     Indication: GASTRITIS
     Dosage: UNK
     Dates: start: 201305
  3. OMEPRAZOL /00661201/ [Suspect]
     Indication: GASTRITIS
     Dosage: UNK
     Dates: start: 201305
  4. ARAVA [Concomitant]
     Indication: RHEUMATOID ARTHRITIS
     Dosage: UNK
     Route: 048

REACTIONS (4)
  - Nephrolithiasis [Unknown]
  - Abdominal pain [Unknown]
  - Gastritis [Unknown]
  - Liver disorder [Unknown]
